FAERS Safety Report 7981096-7 (Version None)
Quarter: 2011Q4

REPORT INFORMATION
  Report Type: 
  Country: None (occurrence: None)
  Receive Date: 20111215
  Receipt Date: 20111203
  Transmission Date: 20120403
  Serious: Yes (Death, Hospitalization)
  Sender: FDA-Public Use
  Company Number: ES-PAR PHARMACEUTICAL, INC-2011SCPR003484

PATIENT

DRUGS (2)
  1. IBUPROFEN [Suspect]
     Indication: BRONCHITIS
     Dosage: UNK, UNKNOWN
     Route: 065
  2. PENICILLIN [Suspect]
     Indication: BRONCHITIS
     Dosage: UNK, UNKNOWN
     Route: 065

REACTIONS (2)
  - TOXIC EPIDERMAL NECROLYSIS [None]
  - DEATH [None]
